FAERS Safety Report 9552536 (Version 1)
Quarter: 2013Q3

REPORT INFORMATION
  Report Type: Spontaneous
  Country: US (occurrence: None)
  Receive Date: 20130729
  Receipt Date: 20130729
  Transmission Date: 20140515
  Serious: Yes (Other)
  Sender: FDA-Public Use
  Company Number: 1304USA014303

PATIENT
  Age: 49 Year
  Sex: Male

DRUGS (4)
  1. REBETOL (RIBAVIRIN) CAPSULE [Suspect]
     Indication: HEPATITIS C
     Dates: start: 20130421, end: 20130506
  2. PEGINTRON [Suspect]
     Dosage: REDIPEN
     Dates: start: 20130421, end: 20130506
  3. TELAPREVIR (TELAPREVIR) [Suspect]
     Indication: HEPATITIS C
     Dates: start: 20130421, end: 20130506
  4. PEGASYS [Suspect]
     Indication: HEPATITIS C
     Dates: start: 201301

REACTIONS (14)
  - Bone pain [None]
  - Oedema [None]
  - Nervous system disorder [None]
  - Eye disorder [None]
  - Dysgeusia [None]
  - Hypoaesthesia [None]
  - Anaemia [None]
  - Tremor [None]
  - Vomiting [None]
  - Gait disturbance [None]
  - Diarrhoea [None]
  - Leukopenia [None]
  - Haemoglobin decreased [None]
  - White blood cell count decreased [None]
